FAERS Safety Report 21868577 (Version 1)
Quarter: 2023Q1

REPORT INFORMATION
  Report Type: Spontaneous
  Country: US (occurrence: US)
  Receive Date: 20230117
  Receipt Date: 20230117
  Transmission Date: 20230418
  Serious: Yes (Death, Congenital Anomaly)
  Sender: FDA-Public Use
  Company Number: US-ABBVIE-4272038

PATIENT

DRUGS (1)
  1. DEPAKOTE [Suspect]
     Active Substance: DIVALPROEX SODIUM
     Indication: Exposure via body fluid
     Route: 050

REACTIONS (3)
  - Congenital musculoskeletal disorder of limbs [Fatal]
  - Spina bifida [Fatal]
  - Foetal exposure during pregnancy [Unknown]
